FAERS Safety Report 9725867 (Version 1)
Quarter: 2013Q4

REPORT INFORMATION
  Report Type: Spontaneous
  Country: US (occurrence: None)
  Receive Date: 20131202
  Receipt Date: 20131202
  Transmission Date: 20140711
  Serious: Yes (Hospitalization)
  Sender: FDA-Public Use
  Company Number: None

PATIENT
  Age: 47 Year
  Sex: Female
  Weight: 68.04 kg

DRUGS (6)
  1. TOPIRAMATE [Suspect]
     Indication: MIGRAINE PROPHYLAXIS
     Route: 048
     Dates: start: 2010, end: 20130517
  2. PRISTIQ [Concomitant]
  3. NORTRIPTYLENE [Concomitant]
  4. BC POWDERS [Concomitant]
  5. VIT E [Concomitant]
  6. MULTI-VITAMIN [Concomitant]

REACTIONS (2)
  - Cognitive disorder [None]
  - Bradyphrenia [None]
